FAERS Safety Report 9755111 (Version 2)
Quarter: 2014Q1

REPORT INFORMATION
  Report Type: Report from Study
  Country: ES (occurrence: ES)
  Receive Date: 20131213
  Receipt Date: 20140122
  Transmission Date: 20141002
  Serious: Yes (Other)
  Sender: FDA-Public Use
  Company Number: ES-CELGENEUS-144-21880-13120480

PATIENT
  Age: 76 Year
  Sex: Male
  Weight: 71.5 kg

DRUGS (33)
  1. REVLIMID [Suspect]
     Indication: PLASMA CELL MYELOMA
     Dosage: 25 MILLIGRAM
     Route: 048
     Dates: start: 20111228, end: 20120605
  2. REVLIMID [Suspect]
     Dosage: 11.25 MILLIGRAM
     Route: 048
     Dates: start: 20120613, end: 20130507
  3. REVLIMID [Suspect]
     Dosage: 10 MILLIGRAM
     Route: 048
     Dates: start: 20130515, end: 20130924
  4. REVLIMID [Suspect]
     Dosage: 5 MILLIGRAM
     Route: 048
     Dates: start: 20131002, end: 20131022
  5. DEXAMETHASONE [Suspect]
     Indication: PLASMA CELL MYELOMA
     Route: 065
     Dates: start: 20100608, end: 20110209
  6. DEXAMETHASONE [Suspect]
     Indication: ACUTE LYMPHOCYTIC LEUKAEMIA
     Dosage: 40 MILLIGRAM
     Route: 065
     Dates: start: 20111228, end: 20120104
  7. DEXAMETHASONE [Suspect]
     Dosage: 40 MILLIGRAM
     Route: 065
     Dates: start: 20131002, end: 20131023
  8. DEXAMETHASONE [Suspect]
     Dosage: 20 MILLIGRAM
     Route: 048
     Dates: start: 20131129
  9. CARFILZOMIB [Suspect]
     Indication: PLASMA CELL MYELOMA
     Dosage: 20 MILLIGRAM/SQ. METER
     Route: 065
     Dates: start: 20111228, end: 20111228
  10. CARFILZOMIB [Suspect]
     Dosage: 27 MILLIGRAM/SQ. METER
     Route: 065
     Dates: start: 20120104, end: 20120105
  11. CARFILZOMIB [Suspect]
     Dosage: 27 MILLIGRAM/SQ. METER
     Route: 065
     Dates: start: 20120125, end: 20120919
  12. CARFILZOMIB [Suspect]
     Dosage: 27 MILLIGRAM/SQ. METER
     Route: 065
     Dates: start: 20121003, end: 20130404
  13. CARFILZOMIB [Suspect]
     Dosage: 27 MILLIGRAM
     Route: 065
     Dates: start: 20130417, end: 20130503
  14. ACICLOVIR [Concomitant]
     Indication: ANTIVIRAL PROPHYLAXIS
     Dosage: 400 MILLIGRAM
     Route: 048
     Dates: start: 20111228
  15. ASPIRINE [Concomitant]
     Indication: ANTICOAGULANT THERAPY
     Dosage: 100 MILLIGRAM
     Route: 048
     Dates: start: 20120420
  16. ASPIRINE [Concomitant]
     Indication: ANTIPLATELET THERAPY
     Route: 065
  17. ATENOLOL [Concomitant]
     Indication: HYPERTENSION
     Dosage: 50 MILLIGRAM
     Route: 048
     Dates: start: 2005
  18. CALCIUM [Concomitant]
     Indication: HYPOCALCAEMIA
     Route: 048
     Dates: start: 20120104
  19. CEFTRIAXONE [Concomitant]
     Indication: RESPIRATORY TRACT INFECTION
     Dosage: 1 GRAM
     Route: 041
     Dates: start: 20121231
  20. CLONAZEPAM [Concomitant]
     Indication: NEURALGIA
     Dosage: .7 MILLIGRAM
     Route: 048
     Dates: start: 20121031
  21. DOXAZOSINE [Concomitant]
     Indication: HYPERTENSION
     Dosage: 4 MILLIGRAM
     Route: 048
     Dates: start: 2003
  22. DUODART [Concomitant]
     Indication: BENIGN PROSTATIC HYPERPLASIA
     Dosage: 0.5/0.4
     Route: 048
     Dates: start: 20130515
  23. ERYTROPIETINE [Concomitant]
     Indication: ANAEMIA
     Route: 058
     Dates: start: 20130516
  24. FENTANIL [Concomitant]
     Indication: PERIPHERAL SENSORY NEUROPATHY
     Route: 062
     Dates: start: 20111228
  25. FORTASEC [Concomitant]
     Indication: PROPHYLAXIS
     Route: 048
     Dates: start: 20110426
  26. FUROSEMIDE [Concomitant]
     Indication: HYPERTENSION
     Dosage: 40 MILLIGRAM
     Route: 048
     Dates: start: 201011
  27. LYRICA [Concomitant]
     Indication: PERIPHERAL SENSORY NEUROPATHY
     Route: 048
     Dates: start: 201102
  28. OMEPRAZOLE [Concomitant]
     Indication: PROPHYLAXIS
     Dosage: 20 MILLIGRAM
     Route: 048
     Dates: start: 20110530
  29. OPTOVITE [Concomitant]
     Indication: ANAEMIA
     Route: 048
     Dates: start: 20120919
  30. PARACETAMOL [Concomitant]
     Indication: PERIPHERAL SENSORY NEUROPATHY
     Route: 048
     Dates: start: 20121231
  31. PARACETAMOL [Concomitant]
     Indication: NEURALGIA
     Route: 065
     Dates: start: 20110426
  32. PHOSPHATE [Concomitant]
     Indication: HYPOPHOSPHATAEMIA
     Route: 048
     Dates: start: 20121213
  33. ZOMETA [Concomitant]
     Indication: PROPHYLAXIS
     Route: 041
     Dates: start: 20120530

REACTIONS (1)
  - Acute lymphocytic leukaemia [Not Recovered/Not Resolved]
